FAERS Safety Report 8985229 (Version 2)
Quarter: 2013Q1

REPORT INFORMATION
  Report Type: Spontaneous
  Country: US (occurrence: US)
  Receive Date: 20121226
  Receipt Date: 20130110
  Transmission Date: 20140127
  Serious: Yes (Other)
  Sender: FDA-Public Use
  Company Number: US-BAYER-2012-133883

PATIENT
  Age: 25 Year
  Sex: Female

DRUGS (1)
  1. MIRENA [Suspect]
     Indication: CONTRACEPTION
     Dosage: 20 MCG/24HR, CONT
     Route: 015
     Dates: start: 201008, end: 201209

REACTIONS (10)
  - Pelvic inflammatory disease [None]
  - Abscess [None]
  - Device difficult to use [None]
  - Post procedural discomfort [None]
  - Abdominal pain lower [None]
  - Depression [None]
  - Anxiety [None]
  - Abdominal pain upper [None]
  - Ovarian cyst [None]
  - Uterine cyst [None]
